FAERS Safety Report 21513639 (Version 12)
Quarter: 2023Q1

REPORT INFORMATION
  Report Type: Report from Study
  Country: US (occurrence: None)
  Receive Date: 20221027
  Receipt Date: 20230323
  Transmission Date: 20230417
  Serious: Yes (Hospitalization)
  Sender: FDA-Public Use
  Company Number: US-ROCHE-3205966

PATIENT
  Age: 57 Year
  Sex: Female

DRUGS (4)
  1. IPATASERTIB [Suspect]
     Active Substance: IPATASERTIB
     Indication: Endometrial cancer
     Dosage: AS PER PROTOCOL.?ON 11/OCT/2022, LAST DOSE PRIOR TO AE/SAE  WAS GIVEN.
     Route: 048
     Dates: start: 20220922, end: 20221011
  2. IPATASERTIB [Suspect]
     Active Substance: IPATASERTIB
     Route: 048
     Dates: start: 20221103
  3. ATEZOLIZUMAB [Suspect]
     Active Substance: ATEZOLIZUMAB
     Indication: Endometrial cancer
     Dosage: AS PER PROTOCOL.?ON 22/SEP/2022, LAST DOSE PRIOR TO AE/SAE  WAS GIVEN.
     Route: 041
     Dates: start: 20220922, end: 20221017
  4. ATEZOLIZUMAB [Suspect]
     Active Substance: ATEZOLIZUMAB
     Route: 041
     Dates: start: 20221103

REACTIONS (4)
  - Anaemia [Recovering/Resolving]
  - Cognitive disorder [Recovering/Resolving]
  - Hyponatraemia [Recovering/Resolving]
  - Hyponatraemia [Recovered/Resolved]

NARRATIVE: CASE EVENT DATE: 20221017
